FAERS Safety Report 16417280 (Version 2)
Quarter: 2019Q3

REPORT INFORMATION
  Report Type: Spontaneous
  Country: ES (occurrence: ES)
  Receive Date: 20190611
  Receipt Date: 20190716
  Transmission Date: 20191004
  Serious: Yes (Death, Hospitalization, Other)
  Sender: FDA-Public Use
  Company Number: ES-BAYER-2019-109490

PATIENT
  Age: 69 Year
  Sex: Female

DRUGS (1)
  1. NEXAVAR [Suspect]
     Active Substance: SORAFENIB
     Indication: PAPILLARY THYROID CANCER
     Dosage: UNK

REACTIONS (5)
  - Bronchitis [None]
  - Fistula [None]
  - Dyspnoea [None]
  - Acute respiratory failure [Fatal]
  - Papillary thyroid cancer [None]
